FAERS Safety Report 19687246 (Version 1)
Quarter: 2021Q3

REPORT INFORMATION
  Report Type: Spontaneous
  Country: US (occurrence: US)
  Receive Date: 20210811
  Receipt Date: 20210811
  Transmission Date: 20211014
  Serious: No
  Sender: FDA-Public Use
  Company Number: US-PFIZER INC-202100971040

PATIENT
  Age: 51 Year
  Sex: Male
  Weight: 77.11 kg

DRUGS (3)
  1. XELJANZ XR [Suspect]
     Active Substance: TOFACITINIB CITRATE
     Indication: RHEUMATOID ARTHRITIS
     Dosage: XR; TAKE ONCE DAILY BY MOUTH
     Route: 048
  2. PREDNISONE. [Suspect]
     Active Substance: PREDNISONE
     Indication: RHEUMATOID ARTHRITIS
     Dosage: 2 MG, 2X/DAY (2MG; TAKE TWICE DAILY BY MOUTH)
     Route: 048
  3. METHOTREXATE SODIUM. [Suspect]
     Active Substance: METHOTREXATE SODIUM
     Indication: RHEUMATOID ARTHRITIS
     Dosage: STATES HE CAN^T REMEMBER HIS DOSE

REACTIONS (3)
  - Incorrect route of product administration [Unknown]
  - Intentional product misuse [Unknown]
  - Therapeutic product effect incomplete [Unknown]

NARRATIVE: CASE EVENT DATE: 202107
